FAERS Safety Report 9187922 (Version 1)
Quarter: 2013Q1

REPORT INFORMATION
  Report Type: Spontaneous
  Country: US (occurrence: US)
  Receive Date: 20130325
  Receipt Date: 20130325
  Transmission Date: 20140127
  Serious: No
  Sender: FDA-Public Use
  Company Number: US-MYLANLABS-2012S1018276

PATIENT
  Age: 46 Year
  Sex: Female
  Weight: 55.34 kg

DRUGS (8)
  1. FENTANYL TRANSDERMAL SYSTEM [Suspect]
     Indication: PAIN
     Dosage: CHANGE Q72HR
     Route: 062
     Dates: start: 2010
  2. ORAL CONTRACEPTIVE NOS [Concomitant]
  3. LEVOXYL [Concomitant]
     Indication: HYPOTHYROIDISM
  4. IRON [Concomitant]
  5. DIAZEPAM [Concomitant]
     Indication: ANXIETY
  6. KLONOPIN [Concomitant]
     Indication: ANXIETY
  7. KEFLEX [Concomitant]
     Indication: IMMUNODEFICIENCY
  8. VITAMIN D [Concomitant]

REACTIONS (3)
  - Drug ineffective [Not Recovered/Not Resolved]
  - Pain [Not Recovered/Not Resolved]
  - Drug screen negative [Not Recovered/Not Resolved]
